FAERS Safety Report 9071277 (Version 1)
Quarter: 2013Q1

REPORT INFORMATION
  Report Type: Spontaneous
  Country: US (occurrence: US)
  Receive Date: 20130129
  Receipt Date: 20130129
  Transmission Date: 20140127
  Serious: Yes (Life-Threatening, Hospitalization, Other)
  Sender: FDA-Public Use
  Company Number: US-NAPPMUNDI-USA-2013-0097897

PATIENT
  Sex: Female

DRUGS (1)
  1. OXYCONTIN TABLETS [Suspect]
     Indication: PAIN
     Dosage: 80 MG, BID
     Route: 048

REACTIONS (6)
  - Optic nerve neoplasm [Unknown]
  - Hepatitis C [Unknown]
  - Head injury [Unknown]
  - Convulsion [Recovered/Resolved]
  - Haemorrhagic disorder [Unknown]
  - Vomiting [Recovered/Resolved]
